FAERS Safety Report 5767864-0 (Version None)
Quarter: 2008Q2

REPORT INFORMATION
  Report Type: 
  Country: None (occurrence: None)
  Receive Date: 20080612
  Receipt Date: 20080604
  Transmission Date: 20081010
  Serious: Yes (Hospitalization)
  Sender: FDA-Public Use
  Company Number: JP-ROCHE-557432

PATIENT
  Sex: Male
  Weight: 46.3 kg

DRUGS (9)
  1. CAPECITABINE [Suspect]
     Indication: GASTRIC CANCER
     Dosage: UNIT: MG/DAY. FREQUENCY: D1-14Q3W.
     Route: 048
     Dates: start: 20080115, end: 20080331
  2. CAPECITABINE [Suspect]
     Dosage: UNIT REPORTED AS MG/DAY, FREQUENCY REPORTED AS D1-14Q3W
     Route: 048
     Dates: end: 20080522
  3. TRASTUZUMAB [Suspect]
     Indication: GASTRIC CANCER
     Dosage: DOSAGE FORM: INFUSION.
     Route: 042
     Dates: start: 20080115
  4. CISPLATIN [Suspect]
     Indication: GASTRIC CANCER
     Dosage: DOSAGE FORM: INFUSION.
     Route: 042
     Dates: start: 20080115, end: 20080522
  5. ZOLPIDEM TARTRATE [Concomitant]
     Dates: start: 20071217, end: 20080406
  6. MAGNESIUM OXIDE [Concomitant]
     Dates: start: 20080322, end: 20080407
  7. CALCIUM LACTATE [Concomitant]
     Dates: start: 20080319, end: 20080407
  8. ALFACALCIDOL [Concomitant]
     Dates: start: 20080401, end: 20080407
  9. VITAMIN B-12 [Concomitant]
     Dates: start: 20080403

REACTIONS (4)
  - DISSEMINATED INTRAVASCULAR COAGULATION [None]
  - ILEUS PARALYTIC [None]
  - SEPSIS [None]
  - VENOUS THROMBOSIS [None]
